FAERS Safety Report 6410732-1 (Version None)
Quarter: 2009Q4

REPORT INFORMATION
  Report Type: 
  Country: None (occurrence: None)
  Receive Date: 20091022
  Receipt Date: 20091016
  Transmission Date: 20100525
  Serious: Yes (Hospitalization)
  Sender: FDA-Public Use
  Company Number: US-ASTRAZENECA-2009SE14253

PATIENT
  Age: 48 Year
  Sex: Female

DRUGS (9)
  1. SEROQUEL XR [Suspect]
     Route: 048
  2. DEPAKOTE [Suspect]
     Indication: MOOD SWINGS
     Route: 048
     Dates: start: 20060814, end: 20090825
  3. CITALOPRAM HYDROBROMIDE [Suspect]
     Indication: DEPRESSION
     Route: 048
     Dates: start: 20080424, end: 20090825
  4. HALDOL [Suspect]
  5. OLANZAPINE [Suspect]
  6. LAMOTRIGINE [Suspect]
  7. LORAZEPAM [Suspect]
  8. IBUPROFEN [Concomitant]
     Indication: PAIN
     Dosage: 600 MG EVERY 6 HOURS AS NEEDED
  9. 13 ADDITIONAL MEDICATION [Concomitant]

REACTIONS (3)
  - INAPPROPRIATE ANTIDIURETIC HORMONE SECRETION [None]
  - NAUSEA [None]
  - VOMITING [None]
